FAERS Safety Report 20722388 (Version 1)
Quarter: 2022Q2

REPORT INFORMATION
  Report Type: Spontaneous
  Country: US (occurrence: None)
  Receive Date: 20220418
  Receipt Date: 20220418
  Transmission Date: 20220721
  Serious: No
  Sender: FDA-Public Use
  Company Number: 2022A146553

PATIENT
  Sex: Female

DRUGS (3)
  1. FASLODEX [Suspect]
     Active Substance: FULVESTRANT
     Dosage: UNKNOWN
     Route: 030
  2. IBRANCE [Suspect]
     Active Substance: PALBOCICLIB
     Indication: Breast cancer recurrent
     Dosage: 125 MG 1 TABLET BY MOUTH DAILY FOR 21 DAYS
     Route: 048
     Dates: start: 20220216, end: 20220307
  3. IBRANCE [Suspect]
     Active Substance: PALBOCICLIB
     Indication: Breast cancer recurrent
     Route: 048
     Dates: start: 20220325

REACTIONS (4)
  - Stomatitis [Unknown]
  - White blood cell count decreased [Unknown]
  - Myalgia [Unknown]
  - Contusion [Unknown]
